FAERS Safety Report 7493917-5 (Version None)
Quarter: 2011Q2

REPORT INFORMATION
  Report Type: 
  Country: None (occurrence: None)
  Receive Date: 20110519
  Receipt Date: 20110519
  Transmission Date: 20111010
  Serious: Yes (Other)
  Sender: FDA-Public Use
  Company Number: None

PATIENT
  Sex: Male
  Weight: 78.4723 kg

DRUGS (1)
  1. GLYBURIDE AND METFORMIN HYDROCHLORIDE [Suspect]
     Indication: TYPE 2 DIABETES MELLITUS
     Dosage: 5 MG GLYBURIDE 500MG METFORMIN 2 PO
     Route: 048
     Dates: start: 20110101, end: 20110513

REACTIONS (4)
  - BACK PAIN [None]
  - DYSSTASIA [None]
  - PRODUCT SUBSTITUTION ISSUE [None]
  - ASTHENIA [None]
